FAERS Safety Report 9525758 (Version 1)
Quarter: 2013Q3

REPORT INFORMATION
  Report Type: Spontaneous
  Country: MA (occurrence: MA)
  Receive Date: 20130916
  Receipt Date: 20130916
  Transmission Date: 20140515
  Serious: Yes (Hospitalization)
  Sender: FDA-Public Use
  Company Number: MA-MYLANLABS-2013S1020172

PATIENT
  Age: 46 Year
  Sex: Female

DRUGS (3)
  1. FLUOROURACIL [Suspect]
     Indication: INVASIVE DUCTAL BREAST CARCINOMA
     Route: 065
  2. CYCLOPHOSPHAMIDE [Concomitant]
     Indication: INVASIVE DUCTAL BREAST CARCINOMA
     Route: 065
  3. DOXORUBICIN [Concomitant]
     Indication: INVASIVE DUCTAL BREAST CARCINOMA
     Route: 065

REACTIONS (1)
  - Ischaemic stroke [Recovering/Resolving]
